FAERS Safety Report 12855872 (Version 1)
Quarter: 2016Q4

REPORT INFORMATION
  Report Type: Spontaneous
  Country: RU (occurrence: None)
  Receive Date: 20161014
  Receipt Date: 20161014
  Transmission Date: 20170207
  Serious: Yes (Hospitalization)
  Sender: FDA-Public Use
  Company Number: RU2016K2540SPO

PATIENT
  Age: 64 Year
  Sex: Male

DRUGS (2)
  1. ENAP (ENALAPRIL) TABLET [Suspect]
     Active Substance: ENALAPRIL
     Route: 048
  2. VEROSPIRON (SPIRONOLACTONE) [Suspect]
     Active Substance: SPIRONOLACTONE
     Indication: PRODUCT USED FOR UNKNOWN INDICATION
     Route: 048

REACTIONS (5)
  - Drug interaction [None]
  - Cold sweat [None]
  - Asthenia [None]
  - Spinal pain [None]
  - Hyperkalaemia [None]

NARRATIVE: CASE EVENT DATE: 201509
